FAERS Safety Report 17441266 (Version 9)
Quarter: 2023Q1

REPORT INFORMATION
  Report Type: Spontaneous
  Country: US (occurrence: US)
  Receive Date: 20200220
  Receipt Date: 20230201
  Transmission Date: 20230418
  Serious: Yes (Other)
  Sender: FDA-Public Use
  Company Number: US-SA-2020SA044671

PATIENT
  Age: 57 Year
  Sex: Female

DRUGS (5)
  1. DUPIXENT [Suspect]
     Active Substance: DUPILUMAB
     Indication: Psoriatic arthropathy
     Dosage: 300 MG, QOW
     Route: 058
     Dates: start: 20190130
  2. DUPIXENT [Suspect]
     Active Substance: DUPILUMAB
     Indication: Systemic lupus erythematosus
     Dosage: 300 MG, QOW
     Route: 058
     Dates: start: 201902
  3. DUPIXENT [Suspect]
     Active Substance: DUPILUMAB
     Indication: Dermatitis atopic
     Dosage: 300 MG, QOW
     Route: 058
     Dates: start: 202104
  4. DUPIXENT [Suspect]
     Active Substance: DUPILUMAB
     Indication: Dermatitis
     Dosage: 300 MG, QOW
     Route: 058
     Dates: start: 20220119
  5. STELARA [Concomitant]
     Active Substance: USTEKINUMAB
     Dosage: UNK

REACTIONS (15)
  - Psoriatic arthropathy [Unknown]
  - Rhinorrhoea [Unknown]
  - Cough [Unknown]
  - Pain [Unknown]
  - Weight increased [Unknown]
  - Vitreous floaters [Unknown]
  - Vision blurred [Unknown]
  - Erythema [Unknown]
  - Dermatitis atopic [Unknown]
  - Blister [Unknown]
  - Skin exfoliation [Unknown]
  - Pruritus [Unknown]
  - Skin burning sensation [Unknown]
  - Pain of skin [Unknown]
  - Product use in unapproved indication [Unknown]

NARRATIVE: CASE EVENT DATE: 20190130
